FAERS Safety Report 6528958-5 (Version None)
Quarter: 2010Q1

REPORT INFORMATION
  Report Type: 
  Country: None (occurrence: None)
  Receive Date: 20100106
  Receipt Date: 20091229
  Transmission Date: 20100710
  Serious: Yes (Hospitalization, Other)
  Sender: FDA-Public Use
  Company Number: US-MERCK-0611USA06479

PATIENT
  Age: 65 Year
  Sex: Female
  Weight: 44 kg

DRUGS (3)
  1. FOSAMAX [Suspect]
     Indication: OSTEOPOROSIS
     Route: 048
     Dates: start: 20000101, end: 20060101
  2. FOSAMAX [Suspect]
     Indication: OSTEOPENIA
     Route: 048
     Dates: start: 20000101, end: 20060101
  3. CALCIUM (UNSPECIFIED) AND VITAMIN D (UNSPECIFIED) [Concomitant]
     Route: 065

REACTIONS (29)
  - ABDOMINAL WALL DISORDER [None]
  - ASTHENIA [None]
  - ATRIOVENTRICULAR BLOCK FIRST DEGREE [None]
  - CARDIAC DISORDER [None]
  - CERUMEN IMPACTION [None]
  - CHILLS [None]
  - CHOKING [None]
  - CORONARY ARTERY DISEASE [None]
  - DIARRHOEA [None]
  - DYSARTHRIA [None]
  - DYSPHAGIA [None]
  - EXTRASYSTOLES [None]
  - FALL [None]
  - FATIGUE [None]
  - HEAD INJURY [None]
  - HYPERPLASIA [None]
  - MACROGLOSSIA [None]
  - MYOSITIS [None]
  - OSTEOMYELITIS [None]
  - OSTEONECROSIS [None]
  - PRODUCTIVE COUGH [None]
  - SPINAL FRACTURE [None]
  - STRESS [None]
  - THORACIC VERTEBRAL FRACTURE [None]
  - TOOTH ABSCESS [None]
  - TOOTH DISORDER [None]
  - TOOTH FRACTURE [None]
  - TROPONIN INCREASED [None]
  - WEIGHT DECREASED [None]
